FAERS Safety Report 26171368 (Version 1)
Quarter: 2025Q4

REPORT INFORMATION
  Report Type: Spontaneous
  Country: US (occurrence: None)
  Receive Date: 20251217
  Receipt Date: 20251217
  Transmission Date: 20260117
  Serious: Yes (Hospitalization)
  Sender: FDA-CTU
  Company Number: None

PATIENT
  Age: 82 Year
  Sex: Female
  Weight: 59.4 kg

DRUGS (6)
  1. RECLAST [Suspect]
     Active Substance: ZOLEDRONIC ACID
     Indication: Osteoporosis
     Dates: start: 20250507
  2. ATORVASTATIN [Concomitant]
     Active Substance: ATORVASTATIN
  3. MULTI-VITAMIN [Concomitant]
     Active Substance: .ALPHA.-TOCOPHEROL ACETATE, DL-\ASCORBIC ACID\CYANOCOBALAMIN\FLUORIDE ION\FOLIC ACID\NIACIN\PYRIDOXI
  4. arterosil [Concomitant]
  5. BORON [Concomitant]
     Active Substance: BORON
  6. delta-fraction [Concomitant]

REACTIONS (2)
  - Chest pain [None]
  - Neck pain [None]

NARRATIVE: CASE EVENT DATE: 20250508
